FAERS Safety Report 18577019 (Version 1)
Quarter: 2020Q4

REPORT INFORMATION
  Report Type: Spontaneous
  Country: US (occurrence: US)
  Receive Date: 20201204
  Receipt Date: 20201204
  Transmission Date: 20210114
  Serious: Yes (Hospitalization, Other)
  Sender: FDA-Public Use
  Company Number: US-009507513-2011USA014169

PATIENT
  Age: 810 Month
  Sex: Female

DRUGS (7)
  1. PRINIVIL [Suspect]
     Active Substance: LISINOPRIL
     Route: 048
  2. COZAAR [Suspect]
     Active Substance: LOSARTAN POTASSIUM
  3. SYMBICORT [Suspect]
     Active Substance: BUDESONIDE\FORMOTEROL FUMARATE DIHYDRATE
     Dosage: 160/4.5 MCG 2 PUFFS DAILY
     Route: 055
  4. ALBUTEROL. [Concomitant]
     Active Substance: ALBUTEROL
     Indication: ASTHMA
     Route: 055
  5. GLIPIZIDE. [Concomitant]
     Active Substance: GLIPIZIDE
     Indication: TYPE 2 DIABETES MELLITUS
  6. SYMBICORT [Suspect]
     Active Substance: BUDESONIDE\FORMOTEROL FUMARATE DIHYDRATE
     Dosage: 160/4.5 MCG 2 PUFFS TWO TIMES A DAY
     Route: 055
     Dates: start: 201008
  7. NORVASC [Concomitant]
     Active Substance: AMLODIPINE BESYLATE
     Indication: BLOOD PRESSURE MEASUREMENT

REACTIONS (5)
  - Product dose omission issue [Unknown]
  - Drug hypersensitivity [Unknown]
  - Incorrect dose administered [Unknown]
  - Seizure [Unknown]
  - Urticaria [Recovered/Resolved]

NARRATIVE: CASE EVENT DATE: 201008
